FAERS Safety Report 6349824-4 (Version None)
Quarter: 2009Q3

REPORT INFORMATION
  Report Type: 
  Country: None (occurrence: None)
  Receive Date: 20090911
  Receipt Date: 20090902
  Transmission Date: 20100115
  Serious: Yes (Hospitalization, Other)
  Sender: FDA-Public Use
  Company Number: US-MERCK-0606USA02749

PATIENT
  Age: 56 Year
  Sex: Female
  Weight: 46 kg

DRUGS (5)
  1. FOSAMAX [Suspect]
     Indication: OSTEOPOROSIS
     Route: 048
     Dates: start: 19950101, end: 20060425
  2. FOSAMAX [Suspect]
     Indication: WRIST FRACTURE
     Route: 048
     Dates: start: 19950101, end: 20060425
  3. CALCIUM (UNSPECIFIED) [Concomitant]
     Route: 065
  4. CENTRUM [Concomitant]
     Route: 065
  5. IRON (UNSPECIFIED) [Concomitant]
     Route: 065

REACTIONS (18)
  - ABSCESS [None]
  - DENTAL CARIES [None]
  - DRUG ADMINISTRATION ERROR [None]
  - EYE PENETRATION [None]
  - FACE INJURY [None]
  - IMPACTED FRACTURE [None]
  - JAW FRACTURE [None]
  - ORAL DISORDER [None]
  - ORAL INFECTION [None]
  - OSTEONECROSIS [None]
  - PELVIC FRACTURE [None]
  - POST-TRAUMATIC STRESS DISORDER [None]
  - ROAD TRAFFIC ACCIDENT [None]
  - SKIN LACERATION [None]
  - SKULL FRACTURED BASE [None]
  - SUBARACHNOID HAEMORRHAGE [None]
  - TOOTH DISORDER [None]
  - TOOTH LOSS [None]
